FAERS Safety Report 5803605-6 (Version None)
Quarter: 2008Q3

REPORT INFORMATION
  Report Type: 
  Country: None (occurrence: None)
  Receive Date: 20080708
  Receipt Date: 20080628
  Transmission Date: 20090109
  Serious: Yes (Other)
  Sender: FDA-Public Use
  Company Number: US-PFIZER INC-2008055214

PATIENT
  Sex: Male
  Weight: 83.636 kg

DRUGS (8)
  1. DETROL LA [Suspect]
     Indication: MICTURITION URGENCY
  2. ALLOPURINOL [Concomitant]
  3. NADOLOL [Concomitant]
  4. ASPIRIN [Concomitant]
  5. PLAVIX [Concomitant]
  6. PREVACID [Concomitant]
  7. AVODART [Concomitant]
  8. ALL OTHER THERAPEUTIC PRODUCTS [Concomitant]

REACTIONS (2)
  - BALANCE DISORDER [None]
  - VERTIGO [None]
